FAERS Safety Report 16377471 (Version 3)
Quarter: 2020Q1

REPORT INFORMATION
  Report Type: Spontaneous
  Country: US (occurrence: US)
  Receive Date: 20190531
  Receipt Date: 20200326
  Transmission Date: 20200409
  Serious: No
  Sender: FDA-Public Use
  Company Number: US-PFIZER INC-2019232517

PATIENT
  Age: 74 Year
  Sex: Female

DRUGS (11)
  1. CARBAMAZEPINE. [Suspect]
     Active Substance: CARBAMAZEPINE
     Indication: HEADACHE
     Dosage: UNK
  2. HYDROCODONE [Suspect]
     Active Substance: HYDROCODONE
     Indication: HEADACHE
     Dosage: UNK
     Dates: start: 1970, end: 1970
  3. TRAMADOL. [Suspect]
     Active Substance: TRAMADOL
     Indication: PAIN
     Dosage: UNK
  4. NIACIN. [Suspect]
     Active Substance: NIACIN
     Indication: BLOOD CHOLESTEROL ABNORMAL
     Dosage: 1 DF, DAILY
     Dates: end: 2009
  5. KEFLEX [Suspect]
     Active Substance: CEPHALEXIN
     Indication: TOOTH EXTRACTION
     Dosage: UNK
  6. PHENOBARBITAL. [Suspect]
     Active Substance: PHENOBARBITAL
     Indication: HEADACHE
     Dosage: UNK
     Dates: start: 1969, end: 1969
  7. TOVIAZ [Suspect]
     Active Substance: FESOTERODINE FUMARATE
     Dosage: UNK
  8. FELDEN [PIROXICAM] [Suspect]
     Active Substance: PIROXICAM
     Dosage: UNK
  9. CODEINE [Suspect]
     Active Substance: CODEINE
     Indication: HEADACHE
     Dosage: UNK
     Dates: end: 1969
  10. IMITREX [Suspect]
     Active Substance: SUMATRIPTAN SUCCINATE
     Indication: HEADACHE
     Dosage: UNK
     Dates: start: 1998, end: 1998
  11. TRAMADOL. [Suspect]
     Active Substance: TRAMADOL
     Indication: HEADACHE

REACTIONS (2)
  - Drug intolerance [Recovered/Resolved]
  - Trigeminal neuralgia [Unknown]

NARRATIVE: CASE EVENT DATE: 2001
